FAERS Safety Report 21629321 (Version 1)
Quarter: 2022Q4

REPORT INFORMATION
  Report Type: Report from Study
  Country: US (occurrence: US)
  Receive Date: 20221122
  Receipt Date: 20221122
  Transmission Date: 20230113
  Serious: No
  Sender: FDA-Public Use
  Company Number: US-ABBVIE-4174306

PATIENT
  Age: 62 Year
  Sex: Female

DRUGS (2)
  1. SKYRIZI [Suspect]
     Active Substance: RISANKIZUMAB-RZAA
     Indication: Psoriasis
     Dosage: FORM STRENGTH 150 MG ,WEEK 0
     Route: 058
     Dates: start: 20220919, end: 20220919
  2. SKYRIZI [Suspect]
     Active Substance: RISANKIZUMAB-RZAA
     Dosage: FORM STRENGTH 150 MG, WEEK 4
     Route: 058
     Dates: start: 20221013

REACTIONS (7)
  - Loss of personal independence in daily activities [Unknown]
  - Headache [Unknown]
  - Musculoskeletal disorder [Unknown]
  - Psoriasis [Unknown]
  - Hypertension [Unknown]
  - Weight increased [Unknown]
  - Drug ineffective [Unknown]

NARRATIVE: CASE EVENT DATE: 20221001
